FAERS Safety Report 11593762 (Version 2)
Quarter: 2015Q4

REPORT INFORMATION
  Report Type: Spontaneous
  Country: JP (occurrence: JP)
  Receive Date: 20151005
  Receipt Date: 20151009
  Transmission Date: 20160304
  Serious: Yes (Death)
  Sender: FDA-Public Use
  Company Number: JP-PFIZER INC-2015330021

PATIENT
  Age: 85 Year
  Sex: Male

DRUGS (5)
  1. RECOMODULIN [Suspect]
     Active Substance: THROMBOMODULIN ALFA
     Dosage: 25600 U
     Route: 065
     Dates: start: 20130402
  2. ZITHROMAC [Suspect]
     Active Substance: AZITHROMYCIN DIHYDRATE
     Dosage: 500 MG, DAILY
     Dates: start: 20130402
  3. ELASPOL [Concomitant]
     Active Substance: SIVELESTAT SODIUM
     Dosage: 300 MG
  4. METHYLPREDNISOLONE. [Concomitant]
     Active Substance: METHYLPREDNISOLONE
     Dosage: 1 G/DAY
  5. MEROPENEM. [Concomitant]
     Active Substance: MEROPENEM
     Dosage: 0.5 G 3X/DAY

REACTIONS (2)
  - Hepatic function abnormal [Fatal]
  - Multi-organ failure [Fatal]

NARRATIVE: CASE EVENT DATE: 20130404
